FAERS Safety Report 9460102 (Version 1)
Quarter: 2013Q3

REPORT INFORMATION
  Report Type: Spontaneous
  Country: GB (occurrence: GB)
  Receive Date: 20130815
  Receipt Date: 20130815
  Transmission Date: 20140515
  Serious: Yes (Hospitalization, Other)
  Sender: FDA-Public Use
  Company Number: GB-UCBSA-094783

PATIENT
  Age: 47 Year
  Sex: Female

DRUGS (4)
  1. CIMZIA [Suspect]
     Indication: RHEUMATOID ARTHRITIS
     Dosage: DOSE: 200MG
     Route: 058
     Dates: start: 201107
  2. METHOTREXATE [Suspect]
     Indication: RHEUMATOID ARTHRITIS
     Dosage: DOSE:20MG
     Route: 048
     Dates: start: 2010
  3. PROPRANOLOL [Concomitant]
     Indication: PALPITATIONS
     Dosage: UNKNOWN
     Route: 048
  4. VENLAFAXINE [Concomitant]
     Indication: ANTIDEPRESSANT THERAPY
     Dosage: UNKNOWN
     Route: 048

REACTIONS (1)
  - Meningitis viral [Recovering/Resolving]
